FAERS Safety Report 24702201 (Version 1)
Quarter: 2024Q4

REPORT INFORMATION
  Report Type: Spontaneous
  Country: FR (occurrence: FR)
  Receive Date: 20241205
  Receipt Date: 20241205
  Transmission Date: 20250115
  Serious: Yes (Hospitalization, Other)
  Sender: CIPLA
  Company Number: FR-AFSSAPS-TO2024002113

PATIENT

DRUGS (3)
  1. RIVAROXABAN [Suspect]
     Active Substance: RIVAROXABAN
     Indication: Cardiac valve disease
     Dosage: 1 DOSAGE FORM, QD
     Route: 048
  2. ESIDREX [Suspect]
     Active Substance: HYDROCHLOROTHIAZIDE
     Indication: Oedema due to cardiac disease
     Dosage: 12.5 MILLIGRAM, QD
     Route: 048
     Dates: start: 20240302, end: 20240402
  3. FUROSEMIDE [Suspect]
     Active Substance: FUROSEMIDE
     Indication: Oedema due to cardiac disease
     Dosage: 500 MILLIGRAM, QD (LC)
     Route: 048
     Dates: start: 20240227, end: 20240409

REACTIONS (2)
  - Prothrombin time shortened [Recovered/Resolved]
  - Acute kidney injury [Recovered/Resolved]

NARRATIVE: CASE EVENT DATE: 20240301
